FAERS Safety Report 9539216 (Version 2)
Quarter: 2014Q2

REPORT INFORMATION
  Report Type: Spontaneous
  Country: US (occurrence: None)
  Receive Date: 20130917
  Receipt Date: 20140425
  Transmission Date: 20141212
  Serious: Yes (Other)
  Sender: FDA-Public Use
  Company Number: OTH-PAT-2013017

PATIENT
  Age: 34 Year
  Sex: Male

DRUGS (1)
  1. CYSTADANE [Suspect]
     Indication: HOMOCYSTINURIA
     Dosage: 9 G EVERY DAY
     Dates: start: 20130802

REACTIONS (3)
  - Hiccups [None]
  - Overdose [None]
  - Diarrhoea [None]
